FAERS Safety Report 24649906 (Version 2)
Quarter: 2024Q4

REPORT INFORMATION
  Report Type: Report from Study
  Country: US (occurrence: US)
  Receive Date: 20241122
  Receipt Date: 20241210
  Transmission Date: 20250115
  Serious: Yes (Hospitalization, Other)
  Sender: ABBVIE
  Company Number: US-ABBVIE-6009670

PATIENT
  Sex: Female

DRUGS (1)
  1. HUMIRA [Suspect]
     Active Substance: ADALIMUMAB
     Indication: Rheumatoid arthritis
     Route: 058
     Dates: start: 202206

REACTIONS (13)
  - Cartilage atrophy [Unknown]
  - Cystitis [Recovered/Resolved]
  - Anxiety [Unknown]
  - Gait disturbance [Recovered/Resolved]
  - Sleep disorder [Unknown]
  - Abnormal dreams [Unknown]
  - Osteoarthritis [Unknown]
  - Arthralgia [Unknown]
  - Insomnia [Recovering/Resolving]
  - Musculoskeletal disorder [Unknown]
  - Arthralgia [Recovering/Resolving]
  - Chondropathy [Unknown]
  - Urinary incontinence [Unknown]
